FAERS Safety Report 9376293 (Version 2)
Quarter: 2013Q3

REPORT INFORMATION
  Report Type: Spontaneous
  Country: IE (occurrence: IE)
  Receive Date: 20130701
  Receipt Date: 20130701
  Transmission Date: 20140515
  Serious: Yes (Other)
  Sender: FDA-Public Use
  Company Number: PHHY2013IE008078

PATIENT
  Sex: Male

DRUGS (2)
  1. RAMILO [Suspect]
  2. STEROIDS NOS [Concomitant]
     Indication: IMMUNE SYSTEM DISORDER

REACTIONS (3)
  - Pulmonary fibrosis [Unknown]
  - Cough [Unknown]
  - Dyspnoea [Unknown]
